FAERS Safety Report 10791613 (Version 2)
Quarter: 2015Q3

REPORT INFORMATION
  Report Type: Spontaneous
  Country: IT (occurrence: IT)
  Receive Date: 20150213
  Receipt Date: 20150724
  Transmission Date: 20151125
  Serious: Yes (Other)
  Sender: FDA-Public Use
  Company Number: IT-ACCORD-028497

PATIENT
  Age: 45 Year
  Sex: Female

DRUGS (7)
  1. VECTIBIX [Concomitant]
     Active Substance: PANITUMUMAB
     Dosage: STRENGTH: 20 MG/ML
     Route: 042
     Dates: start: 20141104, end: 20150129
  2. ZANTAC [Concomitant]
     Active Substance: RANITIDINE HYDROCHLORIDE
     Dosage: STRENGTH: 50 MG/5 ML
     Route: 042
     Dates: start: 20150129, end: 20150129
  3. OXALIPLATIN ACCORD [Suspect]
     Active Substance: OXALIPLATIN
     Indication: PRODUCT USED FOR UNKNOWN INDICATION
     Dosage: STRENGTH: 5 MG/ML
     Route: 042
     Dates: start: 20141104, end: 20150129
  4. CALCIUM LEVOFOLINATE TEVA [Concomitant]
     Active Substance: LEVOLEUCOVORIN CALCIUM
     Route: 042
     Dates: start: 20141104, end: 20150129
  5. FLUOROURACIL ACCORD [Suspect]
     Active Substance: FLUOROURACIL
     Indication: PRODUCT USED FOR UNKNOWN INDICATION
     Dosage: STRENGTH: 50 MG/ML
     Route: 042
     Dates: start: 20141104, end: 20150129
  6. SOLDESAM [Concomitant]
     Active Substance: DEXAMETHASONE
     Dosage: STRENGTH: 4 MG/ML
     Route: 041
     Dates: start: 20150129, end: 20150129
  7. ALOXI [Concomitant]
     Active Substance: PALONOSETRON HYDROCHLORIDE
     Indication: PROPHYLAXIS OF NAUSEA AND VOMITING
     Route: 040
     Dates: start: 20150129, end: 20150129

REACTIONS (6)
  - Pyrexia [Unknown]
  - Dysphonia [Recovered/Resolved]
  - Dyspnoea [Recovered/Resolved]
  - Paraesthesia [Recovered/Resolved]
  - Lip oedema [Recovered/Resolved]
  - Dysphagia [Recovered/Resolved]

NARRATIVE: CASE EVENT DATE: 20150129
